FAERS Safety Report 17016287 (Version 1)
Quarter: 2019Q4

REPORT INFORMATION
  Report Type: Report from Study
  Country: ZA (occurrence: ZA)
  Receive Date: 20191111
  Receipt Date: 20191111
  Transmission Date: 20200122
  Serious: Yes (Hospitalization)
  Sender: FDA-Public Use
  Company Number: ZA-SA-2019SA136046

PATIENT
  Age: 56 Year
  Sex: Male

DRUGS (4)
  1. NO STUDY DRUG GIVEN [Suspect]
     Active Substance: INVESTIGATIONAL PRODUCT
  2. DIAGLUCIDE [Concomitant]
     Active Substance: GLICLAZIDE
     Dosage: BEFORE BREAKFAST- 60 MG, QD
     Dates: start: 20020101
  3. TOUJEO [Suspect]
     Active Substance: INSULIN GLARGINE
     Dosage: BED TIME-22 UNITS, HS
     Dates: start: 20190320
  4. PREXUM [Concomitant]
     Active Substance: PERINDOPRIL ERBUMINE
     Dosage: BEFORE BREAKFAST-5 MG, QD
     Dates: start: 20181010

REACTIONS (4)
  - Fungal infection [Not Recovered/Not Resolved]
  - Glycosylated haemoglobin increased [Unknown]
  - Hyperglycaemia [Unknown]
  - Limb discomfort [Unknown]

NARRATIVE: CASE EVENT DATE: 20190516
